FAERS Safety Report 15629292 (Version 1)
Quarter: 2018Q4

REPORT INFORMATION
  Report Type: Spontaneous
  Country: GB (occurrence: GB)
  Receive Date: 20181117
  Receipt Date: 20181117
  Transmission Date: 20190205
  Serious: Yes (Other)
  Sender: FDA-Public Use
  Company Number: GB-B.I. PHARMACEUTICALS,INC./RIDGEFIELD-2018-12-003724

PATIENT
  Age: 62 Year
  Sex: Female
  Weight: 62 kg

DRUGS (2)
  1. PRADAXA [Suspect]
     Active Substance: DABIGATRAN ETEXILATE MESYLATE
     Indication: HIP ARTHROPLASTY
     Route: 048
     Dates: start: 20181005, end: 20181015
  2. ATORVASTATIN [Concomitant]
     Active Substance: ATORVASTATIN
     Indication: PRODUCT USED FOR UNKNOWN INDICATION
     Route: 065

REACTIONS (4)
  - Liver function test increased [Unknown]
  - Abdominal discomfort [Recovered/Resolved with Sequelae]
  - Diarrhoea [Recovered/Resolved with Sequelae]
  - Faeces discoloured [Recovered/Resolved with Sequelae]

NARRATIVE: CASE EVENT DATE: 20181006
